FAERS Safety Report 8135735-0 (Version None)
Quarter: 2012Q1

REPORT INFORMATION
  Report Type: 
  Country: None (occurrence: None)
  Receive Date: 20120210
  Receipt Date: 20120125
  Transmission Date: 20120608
  Serious: Yes (Death)
  Sender: FDA-Public Use
  Company Number: OPER20120049

PATIENT
  Age: 29 Year
  Sex: Male

DRUGS (3)
  1. HYDROCODONE BITARTRATE AND ACETAMINOPHEN [Suspect]
     Indication: PRODUCT USED FOR UNKNOWN INDICATION
  2. OPANA ER [Suspect]
     Indication: PRODUCT USED FOR UNKNOWN INDICATION
  3. ETHANOL (ETHANOL) (UNKNOWN) [Suspect]
     Indication: PRODUCT USED FOR UNKNOWN INDICATION

REACTIONS (2)
  - RESPIRATORY ARREST [None]
  - CARDIAC ARREST [None]
